FAERS Safety Report 7642815-2 (Version None)
Quarter: 2011Q3

REPORT INFORMATION
  Report Type: 
  Country: None (occurrence: None)
  Receive Date: 20110728
  Receipt Date: 20110723
  Transmission Date: 20111222
  Serious: Yes (Other)
  Sender: FDA-Public Use
  Company Number: BR-ABBOTT-11P-020-0838469-00

PATIENT
  Sex: Female
  Weight: 68 kg

DRUGS (14)
  1. SULFASALAZINE [Concomitant]
     Indication: RHEUMATOID ARTHRITIS
     Route: 048
  2. DEFLAZACORT [Concomitant]
     Indication: MUSCULOSKELETAL PAIN
     Route: 048
  3. SULFASALAZINE [Concomitant]
     Indication: ARTHRITIS ENTEROPATHIC
  4. CYCLOBENZAPRINE [Concomitant]
     Indication: ARTHRITIS ENTEROPATHIC
     Route: 048
  5. HUMIRA [Suspect]
     Indication: ANKYLOSING SPONDYLITIS
     Route: 058
  6. VITAMIN D 600 | CALCIUM (OSCAL D) [Concomitant]
     Indication: VITAMIN SUPPLEMENTATION
     Route: 048
  7. AMITRIPTYLINE HCL [Concomitant]
     Indication: FIBROMYALGIA
     Route: 048
  8. AMITRIPTYLINE HCL [Concomitant]
     Indication: ARTHRITIS ENTEROPATHIC
  9. CYCLOBENZAPRINE [Concomitant]
     Indication: FIBROMYALGIA
  10. UNKNOWN CORTICOID [Concomitant]
     Indication: ARTHRITIS ENTEROPATHIC
  11. HUMIRA [Suspect]
     Indication: ARTHRITIS ENTEROPATHIC
     Route: 058
  12. OMEPRAZOLE [Concomitant]
     Indication: PROPHYLAXIS
     Route: 048
  13. OMEPRAZOLE [Concomitant]
     Indication: GASTRIC DISORDER
  14. VITAMIN D 600 | CALCIUM (OSCAL D) [Concomitant]
     Indication: ARTHRITIS ENTEROPATHIC

REACTIONS (1)
  - CYST RUPTURE [None]
